FAERS Safety Report 13711541 (Version 1)
Quarter: 2017Q3

REPORT INFORMATION
  Report Type: Spontaneous
  Country: US (occurrence: US)
  Receive Date: 20170703
  Receipt Date: 20170703
  Transmission Date: 20171127
  Serious: No
  Sender: FDA-Public Use
  Company Number: US-SEBELA IRELAND LIMITED-2017SEB00024

PATIENT
  Sex: Female
  Weight: 77.98 kg

DRUGS (4)
  1. ALOSETRON HYDROCHLORIDE. [Suspect]
     Active Substance: ALOSETRON HYDROCHLORIDE
     Indication: GASTRIC INFECTION
     Dosage: 1 TABLETS, 2X/DAY
     Route: 048
     Dates: start: 2016, end: 20161124
  2. ALOSETRON HYDROCHLORIDE. [Suspect]
     Active Substance: ALOSETRON HYDROCHLORIDE
     Dosage: 1 TABLETS, 2X/DAY
     Route: 048
     Dates: start: 201701
  3. ALOSETRON HYDROCHLORIDE. [Suspect]
     Active Substance: ALOSETRON HYDROCHLORIDE
     Indication: DIARRHOEA
     Dosage: 1 TABLETS, 3X/DAY
     Route: 048
     Dates: start: 20161124, end: 201701
  4. CHOLESTYRAMINE ORAL SUSPENSION [Concomitant]

REACTIONS (2)
  - Drug ineffective for unapproved indication [Not Recovered/Not Resolved]
  - Depressed mood [Recovered/Resolved]

NARRATIVE: CASE EVENT DATE: 2016
